FAERS Safety Report 5676402-2 (Version None)
Quarter: 2008Q1

REPORT INFORMATION
  Report Type: 
  Country: None (occurrence: None)
  Receive Date: 20080321
  Receipt Date: 20080311
  Transmission Date: 20080703
  Serious: Yes (Other)
  Sender: FDA-Public Use
  Company Number: US-PFIZER INC-2008023607

PATIENT
  Sex: Female
  Weight: 72.727 kg

DRUGS (4)
  1. DILANTIN [Suspect]
     Indication: CONVULSION
  2. PHENOBARBITAL TAB [Concomitant]
  3. TEGRETOL [Concomitant]
  4. XALATAN [Concomitant]

REACTIONS (2)
  - ABDOMINAL PAIN [None]
  - DRUG INTOLERANCE [None]
